FAERS Safety Report 10906558 (Version 1)
Quarter: 2015Q1

REPORT INFORMATION
  Report Type: Report from Study
  Country: FR (occurrence: FR)
  Receive Date: 20150312
  Receipt Date: 20150312
  Transmission Date: 20150721
  Serious: Yes (Death, Hospitalization, Other)
  Sender: FDA-Public Use
  Company Number: FR-ROCHE-1549019

PATIENT
  Sex: Female

DRUGS (3)
  1. RITUXIMAB [Suspect]
     Active Substance: RITUXIMAB
     Indication: RHEUMATOID ARTHRITIS
     Dosage: ON 26/JAN/2006 (DAY 15), 03/AUG/2007 (DAY 1), 17/AUG/2007 (DAY 15) AND 22/DEC/2008 (DAY 1) THE PATIE
     Route: 042
     Dates: start: 20060111, end: 20090105
  2. CORTANCYL [Concomitant]
     Active Substance: PREDNISONE
     Dosage: 10 MG/DAY
     Route: 065
  3. CORTANCYL [Concomitant]
     Active Substance: PREDNISONE
     Dosage: 6 MG/DAY
     Route: 065

REACTIONS (9)
  - Cardiac failure [Recovered/Resolved with Sequelae]
  - Urinary tract infection [Recovered/Resolved]
  - Congestive cardiomyopathy [Unknown]
  - Asthenia [Not Recovered/Not Resolved]
  - Weight decreased [Not Recovered/Not Resolved]
  - Livedo reticularis [Not Recovered/Not Resolved]
  - Death [Fatal]
  - Pruritus [Not Recovered/Not Resolved]
  - Ventricular hypokinesia [Recovered/Resolved with Sequelae]

NARRATIVE: CASE EVENT DATE: 2007
